FAERS Safety Report 8575532-5 (Version None)
Quarter: 2012Q3

REPORT INFORMATION
  Report Type: 
  Country: None (occurrence: None)
  Receive Date: 20120807
  Receipt Date: 20120802
  Transmission Date: 20120928
  Serious: Yes (Other)
  Sender: FDA-Public Use
  Company Number: PHHY2012AR067048

PATIENT
  Sex: Female

DRUGS (1)
  1. EXFORGE [Suspect]
     Indication: BLOOD PRESSURE ABNORMAL
     Dosage: 1 DF (80MG VALS/ 5MG AMLO), DAILY

REACTIONS (4)
  - GASTRIC DISORDER [None]
  - BLINDNESS UNILATERAL [None]
  - EYE DISORDER [None]
  - ULCER [None]
